FAERS Safety Report 4381400-5 (Version None)
Quarter: 2004Q2

REPORT INFORMATION
  Report Type: 
  Country: None (occurrence: None)
  Receive Date: 20040617
  Receipt Date: 20040617
  Transmission Date: 20050107
  Serious: Yes (Hospitalization)
  Sender: FDA-Public Use
  Company Number: None

PATIENT
  Sex: Female
  Weight: 99.7913 kg

DRUGS (11)
  1. ABILIFY [Suspect]
     Indication: DEPRESSION
     Dosage: 10 MG PO QD
     Route: 048
     Dates: start: 20040524
  2. MORPHINE [Concomitant]
  3. LOTENSIN [Concomitant]
  4. COLACE [Concomitant]
  5. PROZAC [Concomitant]
  6. LASIX [Concomitant]
  7. SYNTHROID [Concomitant]
  8. HYZAAR [Concomitant]
  9. MILK OF MAGNESIA TAB [Concomitant]
  10. COUMADIN [Concomitant]
  11. TYLENOL [Concomitant]

REACTIONS (5)
  - BLOOD PRESSURE DIASTOLIC DECREASED [None]
  - BODY TEMPERATURE INCREASED [None]
  - DRUG INTERACTION [None]
  - NEUROLEPTIC MALIGNANT SYNDROME [None]
  - RESPIRATORY RATE INCREASED [None]
